APPROVED DRUG PRODUCT: THIOTHIXENE
Active Ingredient: THIOTHIXENE
Strength: 1MG
Dosage Form/Route: CAPSULE;ORAL
Application: A070600 | Product #001
Applicant: CHARTWELL RX SCIENCES LLC
Approved: Jun 5, 1987 | RLD: No | RS: No | Type: DISCN